FAERS Safety Report 15518038 (Version 1)
Quarter: 2018Q4

REPORT INFORMATION
  Report Type: Spontaneous
  Country: US (occurrence: US)
  Receive Date: 20181012
  Receipt Date: 20181012
  Transmission Date: 20190205
  Serious: Yes (Life-Threatening, Other)
  Sender: FDA-Public Use
  Company Number: None

PATIENT
  Age: 62 Year
  Sex: Female
  Weight: 111.6 kg

DRUGS (1)
  1. LEVOTHYROXINE/LIOTHYRONINE 60MG [Suspect]
     Active Substance: LEVOTHYROXINE\LIOTHYRONINE
     Indication: HYPOTHYROIDISM

REACTIONS (4)
  - Palpitations [None]
  - Dyspnoea [None]
  - Product dispensing error [None]
  - Recalled product [None]

NARRATIVE: CASE EVENT DATE: 20180521
